FAERS Safety Report 4421048-7 (Version None)
Quarter: 2004Q3

REPORT INFORMATION
  Report Type: 
  Country: None (occurrence: None)
  Receive Date: 20040809
  Receipt Date: 20030703
  Transmission Date: 20050211
  Serious: Yes (Hospitalization, Other)
  Sender: FDA-Public Use
  Company Number: PHHO2003RU08453

PATIENT
  Age: 65 Year
  Sex: Female
  Weight: 63 kg

DRUGS (13)
  1. RIBOXIN [Concomitant]
  2. VINPOCETINE [Concomitant]
  3. RELADORM [Concomitant]
  4. FAMOTIDINE [Concomitant]
  5. DUPHALAC [Concomitant]
  6. PARIET [Concomitant]
  7. RANITIDINE [Concomitant]
  8. PHENAZEPAM [Concomitant]
  9. L-THYROXIN [Concomitant]
  10. NORVASC [Concomitant]
  11. ZOLEDRONATE VS PLACEBO [Suspect]
     Indication: OSTEOPOROSIS POSTMENOPAUSAL
     Dosage: DOUBLE BLIND
     Route: 042
     Dates: start: 20030214
  12. CALCIUM [Concomitant]
     Indication: OSTEOPOROSIS POSTMENOPAUSAL
  13. VITAMIN D [Concomitant]
     Indication: OSTEOPOROSIS POSTMENOPAUSAL

REACTIONS (5)
  - DIZZINESS [None]
  - HEADACHE [None]
  - HYPOTENSION [None]
  - PAPILLARY THYROID CANCER [None]
  - THYROIDECTOMY [None]
